FAERS Safety Report 19590166 (Version 2)
Quarter: 2022Q4

REPORT INFORMATION
  Report Type: Spontaneous
  Country: US (occurrence: US)
  Receive Date: 20210721
  Receipt Date: 20221118
  Transmission Date: 20230113
  Serious: Yes (Other)
  Sender: FDA-Public Use
  Company Number: US-SA-2021SA240461

PATIENT
  Age: 40 Year
  Sex: Male

DRUGS (1)
  1. ZANTAC [Suspect]
     Active Substance: RANITIDINE HYDROCHLORIDE
     Indication: Dyspepsia
     Dosage: 150 MG (OTHER)
     Dates: start: 201305, end: 201909

REACTIONS (1)
  - Testis cancer [Unknown]

NARRATIVE: CASE EVENT DATE: 20190801
